FAERS Safety Report 8203289-6 (Version None)
Quarter: 2012Q1

REPORT INFORMATION
  Report Type: 
  Country: None (occurrence: None)
  Receive Date: 20120312
  Receipt Date: 20120307
  Transmission Date: 20120608
  Serious: Yes (Hospitalization, Other)
  Sender: FDA-Public Use
  Company Number: JP-ROCHE-733902

PATIENT
  Sex: Male
  Weight: 57 kg

DRUGS (3)
  1. OXALIPLATIN [Concomitant]
     Dosage: NOTE: DOSAGE IS UNCERTAIN
     Route: 041
  2. AVASTIN [Suspect]
     Indication: COLORECTAL CANCER METASTATIC
     Route: 041
     Dates: start: 20100823, end: 20101004
  3. XELODA [Suspect]
     Indication: COLORECTAL CANCER METASTATIC
     Dosage: NOTE: DOSAGE IS UNCERTAIN.
     Route: 048
     Dates: start: 20100823, end: 20101213

REACTIONS (2)
  - INFECTIOUS PERITONITIS [None]
  - DUODENAL PERFORATION [None]
